FAERS Safety Report 6083773-4 (Version None)
Quarter: 2009Q1

REPORT INFORMATION
  Report Type: 
  Country: None (occurrence: None)
  Receive Date: 20090219
  Receipt Date: 20090212
  Transmission Date: 20090719
  Serious: Yes (Other)
  Sender: FDA-Public Use
  Company Number: CA-PFIZER INC-2009165644

PATIENT

DRUGS (2)
  1. LIPITOR [Suspect]
     Indication: BLOOD CHOLESTEROL INCREASED
     Dosage: 20 MG, 1X/DAY
     Route: 048
     Dates: start: 20061201
  2. LIPIDIL [Suspect]
     Indication: BLOOD CHOLESTEROL INCREASED
     Dosage: 160 MG, UNK

REACTIONS (4)
  - FIBROMA [None]
  - HEADACHE [None]
  - HYSTERECTOMY [None]
  - MYALGIA [None]
